FAERS Safety Report 7372064-7 (Version None)
Quarter: 2011Q1

REPORT INFORMATION
  Report Type: 
  Country: None (occurrence: None)
  Receive Date: 20110324
  Receipt Date: 20110318
  Transmission Date: 20110831
  Serious: Yes (Hospitalization, Other)
  Sender: FDA-Public Use
  Company Number: US-B.I. PHARMACEUTICALS,INC./RIDGEFIELD-2011-BP-03357BP

PATIENT
  Age: 62 Year
  Sex: Female
  Weight: 63.95 kg

DRUGS (4)
  1. PRADAXA [Suspect]
     Indication: ATRIAL FIBRILLATION
     Dosage: 300 MG
     Route: 048
     Dates: end: 20110201
  2. AMLODIPINE BESYLATE AND BENAZEPRIL HCL [Concomitant]
  3. HYDROCHLOROTHIAZIDE [Concomitant]
  4. PROPAFENONE [Concomitant]

REACTIONS (8)
  - COUGH [None]
  - DIARRHOEA [None]
  - TOXICITY TO VARIOUS AGENTS [None]
  - RENAL FAILURE ACUTE [None]
  - ASTHENIA [None]
  - NAUSEA [None]
  - VOMITING [None]
  - ACIDOSIS [None]
